FAERS Safety Report 11686551 (Version 2)
Quarter: 2015Q4

REPORT INFORMATION
  Report Type: Spontaneous
  Country: ES (occurrence: ES)
  Receive Date: 20151030
  Receipt Date: 20151109
  Transmission Date: 20160304
  Serious: Yes (Hospitalization, Other)
  Sender: FDA-Public Use
  Company Number: ES-SA-2015SA171922

PATIENT
  Age: 51 Year
  Sex: Female
  Weight: 124 kg

DRUGS (18)
  1. IDEOS [Concomitant]
     Active Substance: CALCIUM CARBONATE\CHOLECALCIFEROL
  2. VICTOZA [Concomitant]
     Active Substance: LIRAGLUTIDE
  3. LEVOTHYROXINE. [Concomitant]
     Active Substance: LEVOTHYROXINE
  4. ARAVA [Suspect]
     Active Substance: LEFLUNOMIDE
     Indication: PSORIATIC ARTHROPATHY
     Dosage: TOTAL DURATION: 8 YEARS
     Route: 048
     Dates: end: 201510
  5. MASDIL RETARD [Concomitant]
     Active Substance: DILTIAZEM HYDROCHLORIDE
  6. ENALAPRIL [Concomitant]
     Active Substance: ENALAPRIL
  7. PARACETAMOL [Concomitant]
     Active Substance: ACETAMINOPHEN
  8. NOVORAPID [Concomitant]
     Active Substance: INSULIN ASPART
  9. LEVEMIR [Concomitant]
     Active Substance: INSULIN DETEMIR
  10. SIMVASTATIN. [Concomitant]
     Active Substance: SIMVASTATIN
     Dosage: STRENGTH: 40 MG
  11. FUROSEMIDA [Concomitant]
     Active Substance: FUROSEMIDE
  12. METOJECT [Concomitant]
     Active Substance: METHOTREXATE SODIUM
     Route: 058
     Dates: start: 201012, end: 201510
  13. FENTANYL. [Concomitant]
     Active Substance: FENTANYL
     Dosage: FORM: PATCH AND FREQUENCY: EVERY 72 HOURS
  14. ACFOL [Concomitant]
     Active Substance: FOLIC ACID
  15. OMEPRAZOLE. [Concomitant]
     Active Substance: OMEPRAZOLE
  16. MANIDIPINE [Concomitant]
     Active Substance: MANIDIPINE
  17. ARAVA [Suspect]
     Active Substance: LEFLUNOMIDE
     Indication: PSORIATIC ARTHROPATHY
     Route: 048
     Dates: start: 200710, end: 201003
  18. OPTOVITE B12 [Concomitant]

REACTIONS (4)
  - Liver disorder [Recovering/Resolving]
  - Blood disorder [Recovering/Resolving]
  - Hepatomegaly [Recovering/Resolving]
  - Asthenia [Recovering/Resolving]

NARRATIVE: CASE EVENT DATE: 201510
